FAERS Safety Report 22767599 (Version 2)
Quarter: 2023Q4

REPORT INFORMATION
  Report Type: Spontaneous
  Country: CN (occurrence: CN)
  Receive Date: 20230731
  Receipt Date: 20231006
  Transmission Date: 20240110
  Serious: Yes (Life-Threatening, Hospitalization)
  Sender: FDA-Public Use
  Company Number: CN-BAYER-2023A107593

PATIENT
  Age: 65 Year
  Sex: Male

DRUGS (1)
  1. ULTRAVIST [Suspect]
     Active Substance: IOPROMIDE
     Indication: Computerised tomogram heart
     Dosage: 76.89 G(100ML), ONCE
     Route: 042
     Dates: start: 20230724, end: 20230724

REACTIONS (7)
  - Rash [Recovering/Resolving]
  - Face oedema [Recovering/Resolving]
  - Eye oedema [Recovering/Resolving]
  - Peripheral coldness [Recovering/Resolving]
  - Tremor [Recovering/Resolving]
  - Laryngeal discomfort [Recovering/Resolving]
  - Blood pressure diastolic increased [Recovering/Resolving]

NARRATIVE: CASE EVENT DATE: 20230724
